FAERS Safety Report 6137154-5 (Version None)
Quarter: 2009Q1

REPORT INFORMATION
  Report Type: 
  Country: None (occurrence: None)
  Receive Date: 20090326
  Receipt Date: 20090326
  Transmission Date: 20090719
  Serious: Yes (Death)
  Sender: FDA-Public Use
  Company Number: None

PATIENT
  Age: 88 Year
  Sex: Female
  Weight: 90.7194 kg

DRUGS (9)
  1. RISPERDAL [Suspect]
     Indication: COGNITIVE DISORDER
     Dosage: UNKNOWN
  2. RISPERDAL [Suspect]
     Indication: PSYCHOTIC DISORDER
     Dosage: UNKNOWN
  3. LIPITOR [Concomitant]
  4. TOPROL-XL [Concomitant]
  5. AVANDAMET [Concomitant]
  6. JANUVIA [Concomitant]
  7. LOTREL [Concomitant]
  8. ARICEPT [Concomitant]
  9. ASPIRIN [Concomitant]

REACTIONS (2)
  - DYSPNOEA [None]
  - LETHARGY [None]
